FAERS Safety Report 7283549-6 (Version None)
Quarter: 2011Q1

REPORT INFORMATION
  Report Type: 
  Country: None (occurrence: None)
  Receive Date: 20110125
  Receipt Date: 20110110
  Transmission Date: 20110831
  Serious: Yes (Death)
  Sender: FDA-Public Use
  Company Number: 025454

PATIENT
  Age: 45 Year
  Sex: Male

DRUGS (6)
  1. LISINOPRIL [Suspect]
     Dosage: (ORAL)
     Route: 048
  2. MUSCLE RELAXANTS [Suspect]
     Dosage: (ORAL)
     Route: 048
  3. ALPRAZOLAM [Suspect]
     Dosage: (ORAL)
     Route: 048
  4. FLUROQUINOLONES [Suspect]
     Dosage: (ORAL)
     Route: 048
  5. DIAZEPAM [Suspect]
     Dosage: (ORAL)
     Route: 048
  6. OXYCODONE [Suspect]
     Dosage: (ORAL)
     Route: 048

REACTIONS (3)
  - DRUG ABUSE [None]
  - CARDIAC ARREST [None]
  - RESPIRATORY ARREST [None]
